FAERS Safety Report 4507116-X (Version None)
Quarter: 2004Q4

REPORT INFORMATION
  Report Type: 
  Country: None (occurrence: None)
  Receive Date: 20041122
  Receipt Date: 20041112
  Transmission Date: 20050328
  Serious: Yes (Life-Threatening, Hospitalization, Disabling)
  Sender: FDA-Public Use
  Company Number: US-MERCK-0411USA02304

PATIENT
  Age: 82 Year
  Sex: Male

DRUGS (4)
  1. VIOXX [Suspect]
     Indication: ARTHRITIS
     Route: 048
     Dates: start: 20000101
  2. PREDNISONE [Concomitant]
     Route: 065
  3. MAGNESIUM (UNSPECIFIED) [Concomitant]
     Route: 065
  4. [THERAPY UNSPECIFIED] [Concomitant]
     Route: 055

REACTIONS (2)
  - HAEMORRHAGE [None]
  - MYOCARDIAL INFARCTION [None]
